FAERS Safety Report 11758207 (Version 2)
Quarter: 2015Q4

REPORT INFORMATION
  Report Type: Spontaneous
  Country: FR (occurrence: FR)
  Receive Date: 20151120
  Receipt Date: 20151203
  Transmission Date: 20160304
  Serious: Yes (Other)
  Sender: FDA-Public Use
  Company Number: FR-MYLANLABS-2015M1040196

PATIENT

DRUGS (2)
  1. LIVIAL [Concomitant]
     Active Substance: TIBOLONE
     Indication: MENOPAUSE
  2. TRAMADOL MYLAN 100 MG, COMPRIM? ? LIB?RATION PROLONG?E [Suspect]
     Active Substance: TRAMADOL
     Indication: BACK PAIN
     Dosage: 100 MG, 4X
     Dates: start: 20151102, end: 20151103

REACTIONS (5)
  - Nausea [Recovered/Resolved]
  - Balance disorder [Recovered/Resolved]
  - Vertigo [Recovered/Resolved]
  - Vomiting [Recovered/Resolved]
  - Asthmatic crisis [Recovered/Resolved]

NARRATIVE: CASE EVENT DATE: 20151103
